FAERS Safety Report 9577943 (Version 1)
Quarter: 2013Q4

REPORT INFORMATION
  Report Type: Spontaneous
  Country: US (occurrence: US)
  Receive Date: 20131001
  Receipt Date: 20131001
  Transmission Date: 20140711
  Serious: No
  Sender: FDA-Public Use
  Company Number: US-AMGEN-USASP2013010836

PATIENT
  Age: 71 Year
  Sex: Male
  Weight: 111.11 kg

DRUGS (1)
  1. ENBREL [Suspect]
     Indication: PSORIASIS
     Dosage: 50 MG, QWK
     Route: 058
     Dates: start: 20121001

REACTIONS (7)
  - Oropharyngeal pain [Unknown]
  - Fatigue [Unknown]
  - Asthenia [Unknown]
  - Pruritus [Unknown]
  - Local swelling [Unknown]
  - Headache [Unknown]
  - Diarrhoea [Unknown]
